FAERS Safety Report 9698298 (Version 1)
Quarter: 2013Q4

REPORT INFORMATION
  Report Type: Spontaneous
  Country: US (occurrence: US)
  Receive Date: 20131120
  Receipt Date: 20131120
  Transmission Date: 20140711
  Serious: No
  Sender: FDA-Public Use
  Company Number: US-ENDO PHARMACEUTICALS INC.-CARI20120001

PATIENT
  Sex: Male
  Weight: 108.96 kg

DRUGS (1)
  1. CARISOPRODOL TABLETS 350MG [Suspect]
     Indication: SPINAL FRACTURE
     Route: 048

REACTIONS (2)
  - Feeling jittery [Unknown]
  - Drug ineffective [Recovered/Resolved]
